FAERS Safety Report 9935435 (Version 2)
Quarter: 2014Q1

REPORT INFORMATION
  Report Type: Spontaneous
  Country: US (occurrence: US)
  Receive Date: 20140228
  Receipt Date: 20140228
  Transmission Date: 20141002
  Serious: No
  Sender: FDA-Public Use
  Company Number: US-PFIZER INC-2013065266

PATIENT
  Age: 55 Year
  Sex: Female
  Weight: 83.9 kg

DRUGS (3)
  1. PRISTIQ [Suspect]
     Indication: ANXIETY
     Dosage: 50 MG DAILY
     Route: 048
  2. PRISTIQ [Suspect]
     Indication: DEPRESSION
     Dosage: 100 MG DAILY
     Route: 048
  3. TOPAMAX [Concomitant]
     Indication: MIGRAINE
     Dosage: 100 MG IN THE MORNING AND HALF OF 100 MG TABLET AT NIGHT

REACTIONS (2)
  - Off label use [Unknown]
  - Malaise [Unknown]
